FAERS Safety Report 11081334 (Version 1)
Quarter: 2015Q2

REPORT INFORMATION
  Report Type: Spontaneous
  Country: US (occurrence: None)
  Receive Date: 20150430
  Receipt Date: 20150430
  Transmission Date: 20150821
  Serious: No
  Sender: FDA-Public Use
  Company Number: None

PATIENT
  Age: 62 Year
  Sex: Male

DRUGS (1)
  1. REMICADE [Suspect]
     Active Substance: INFLIXIMAB
     Indication: COLITIS ULCERATIVE
     Dosage: EVERY 8 WEEKS
     Route: 042
     Dates: start: 201405, end: 201502

REACTIONS (2)
  - Respiratory disorder [None]
  - Dyspnoea [None]

NARRATIVE: CASE EVENT DATE: 20150428
